APPROVED DRUG PRODUCT: ACEBUTOLOL HYDROCHLORIDE
Active Ingredient: ACEBUTOLOL HYDROCHLORIDE
Strength: EQ 200MG BASE
Dosage Form/Route: CAPSULE;ORAL
Application: A074288 | Product #001
Applicant: PHARMOBEDIENT CONSULTING LLC
Approved: Apr 24, 1995 | RLD: No | RS: No | Type: DISCN